FAERS Safety Report 9323985 (Version 2)
Quarter: 2013Q2

REPORT INFORMATION
  Report Type: Spontaneous
  Country: US (occurrence: US)
  Receive Date: 20130603
  Receipt Date: 20130618
  Transmission Date: 20140414
  Serious: Yes (Congenital Anomaly, Other)
  Sender: FDA-Public Use
  Company Number: US-PFIZER INC-2013165437

PATIENT
  Sex: Female

DRUGS (13)
  1. SERTRALINE HCL [Suspect]
     Indication: DEPRESSION
     Dosage: UNK
     Route: 064
     Dates: start: 2006, end: 2007
  2. SERTRALINE HCL [Suspect]
     Dosage: UNK
     Route: 064
     Dates: start: 200708, end: 200802
  3. PRENATAL VITAMINS [Concomitant]
     Dosage: UNK
     Route: 064
  4. BENADRYL [Concomitant]
     Dosage: UNK
     Route: 064
  5. TYLENOL [Concomitant]
     Dosage: UNK
     Route: 064
  6. REPLIVA [Concomitant]
     Dosage: UNK
     Route: 064
  7. MACROBID [Concomitant]
     Dosage: UNK
     Route: 064
  8. PYRIDIUM [Concomitant]
     Dosage: UNK
     Route: 064
  9. ZANTAC [Concomitant]
     Dosage: UNK
     Route: 064
  10. CLARITIN-D [Concomitant]
     Dosage: UNK
     Route: 064
  11. AMOXICILLIN [Concomitant]
     Dosage: UNK
     Route: 064
  12. PRO-AIR INHALER [Concomitant]
     Dosage: UNK
     Route: 064
  13. POTASSIUM SUPPLEMENT [Concomitant]
     Dosage: UNK
     Route: 064

REACTIONS (4)
  - Maternal exposure during pregnancy [Unknown]
  - Talipes [Unknown]
  - Congenital central nervous system anomaly [Unknown]
  - Autism [Unknown]
